FAERS Safety Report 4465176-9 (Version None)
Quarter: 2004Q3

REPORT INFORMATION
  Report Type: 
  Country: None (occurrence: None)
  Receive Date: 20040928
  Receipt Date: 20040928
  Transmission Date: 20050211
  Serious: Yes (Disabling)
  Sender: FDA-Public Use
  Company Number: None

PATIENT
  Age: 58 Year
  Sex: Female
  Weight: 58.5 kg

DRUGS (5)
  1. ZITHROMAX [Suspect]
     Indication: ACUTE SINUSITIS
     Dates: start: 20040914
  2. ZITHROMAX [Suspect]
     Indication: ACUTE SINUSITIS
     Dates: start: 20040915
  3. ERYTHOMYCIN OPHTHALMIC OINTMENT [Suspect]
     Indication: CONJUNCTIVITIS
     Route: 047
     Dates: start: 20040915
  4. FLOVENT [Concomitant]
  5. COMBIVENT [Concomitant]

REACTIONS (1)
  - UVEITIS [None]
